FAERS Safety Report 6490993 (Version 21)
Quarter: 2013Q3

REPORT INFORMATION
  Report Type: Spontaneous
  Country: US (occurrence: US)
  Receive Date: 20071211
  Receipt Date: 20130805
  Transmission Date: 20140515
  Serious: Yes (Death, Hospitalization, Disabling, Other)
  Sender: FDA-Public Use
  Company Number: PHEH2007US15534

PATIENT
  Age: 75 Year
  Sex: Female
  Weight: 197 kg

DRUGS (14)
  1. ZOMETA [Suspect]
     Indication: PLASMA CELL MYELOMA
     Dosage: 4 MG, QMO
     Route: 042
  2. SYNTHROID [Concomitant]
     Dosage: UNK UKN, UNK
  3. DIOVAN [Concomitant]
  4. DECADRON [Concomitant]
  5. GLIPIZIDE [Concomitant]
  6. HORMONES NOS [Concomitant]
  7. ANZEMET [Concomitant]
     Dosage: 100 MG
  8. TYLENOL [Concomitant]
     Dosage: 650 MG
  9. DOXIL [Concomitant]
     Dosage: 30 MG
  10. ATIVAN [Concomitant]
     Dosage: 0.5 MG
  11. ALKERAN [Concomitant]
     Dosage: 2 MG
  12. PREDNISOLONE [Concomitant]
     Dosage: 20 MG
  13. DEXAMETHASONE [Concomitant]
     Dosage: 4 MG
  14. VINCRISTINE [Concomitant]
     Dosage: 2 MG

REACTIONS (103)
  - Plasma cell myeloma [Fatal]
  - Cataract [Unknown]
  - Sepsis [Unknown]
  - Pyelonephritis [Unknown]
  - Squamous cell carcinoma [Unknown]
  - Second primary malignancy [Unknown]
  - Pleural effusion [Unknown]
  - Diverticulum [Unknown]
  - Plasmacytosis [Unknown]
  - Agranulocytosis [Unknown]
  - Spinal osteoarthritis [Unknown]
  - Osteoarthritis [Unknown]
  - Arthralgia [Unknown]
  - Chondromalacia [Unknown]
  - Osteonecrosis of jaw [Unknown]
  - Pain [Unknown]
  - Impaired healing [Unknown]
  - Anxiety [Unknown]
  - Exposed bone in jaw [Unknown]
  - Dental plaque [Unknown]
  - Deformity [Unknown]
  - Gingival bleeding [Unknown]
  - Leukopenia [Unknown]
  - Renal failure acute [Unknown]
  - Urinary incontinence [Unknown]
  - Osteopenia [Unknown]
  - Diabetes mellitus [Unknown]
  - Mononucleosis syndrome [Unknown]
  - Urinary tract infection [Unknown]
  - Varicose vein [Unknown]
  - Umbilical hernia [Unknown]
  - Arteriosclerosis coronary artery [Unknown]
  - Pancytopenia [Unknown]
  - Cellulitis [Unknown]
  - Alpha haemolytic streptococcal infection [Unknown]
  - Lumbar vertebral fracture [Unknown]
  - Spondylolisthesis [Unknown]
  - Intervertebral disc space narrowing [Unknown]
  - Laceration [Unknown]
  - Fall [Unknown]
  - Ascites [Unknown]
  - Compression fracture [Unknown]
  - Bacteraemia [Unknown]
  - Hyperlipidaemia [Unknown]
  - Ecchymosis [Unknown]
  - VIIth nerve paralysis [Unknown]
  - Intervertebral disc degeneration [Unknown]
  - Escherichia infection [Unknown]
  - Pathological fracture [Unknown]
  - Intra-abdominal haemangioma [Unknown]
  - Hypothyroidism [Unknown]
  - Cystitis [Unknown]
  - Swelling face [Unknown]
  - Diaphragmatic hernia [Unknown]
  - Hypertrophy [Unknown]
  - Arteriosclerosis [Unknown]
  - Aortic calcification [Unknown]
  - Haematuria [Unknown]
  - Oral discomfort [Unknown]
  - Oral pain [Unknown]
  - Headache [Unknown]
  - Neck pain [Unknown]
  - Musculoskeletal pain [Unknown]
  - Muscle spasms [Unknown]
  - Gingival disorder [Unknown]
  - Iron deficiency anaemia [Unknown]
  - Oedema peripheral [Unknown]
  - Tachycardia [Unknown]
  - Dizziness [Unknown]
  - Poor dental condition [Unknown]
  - Loose tooth [Unknown]
  - Tooth loss [Unknown]
  - Upper respiratory tract infection [Unknown]
  - Tooth fracture [Unknown]
  - Renal failure chronic [Unknown]
  - Hypoaesthesia [Unknown]
  - Abdominal pain [Unknown]
  - Neuropathy peripheral [Unknown]
  - Pyrexia [Unknown]
  - Back pain [Unknown]
  - Thrombocytopenia [Unknown]
  - Rectal tenesmus [Unknown]
  - Fatigue [Unknown]
  - Dyspnoea [Unknown]
  - Oedema [Unknown]
  - Anaemia [Unknown]
  - Asthenia [Unknown]
  - Dry mouth [Unknown]
  - Hypokalaemia [Unknown]
  - Acidosis [Unknown]
  - Synovial cyst [Unknown]
  - Oral candidiasis [Unknown]
  - Atelectasis [Unknown]
  - Lip blister [Unknown]
  - Erythema [Unknown]
  - Bone marrow failure [Unknown]
  - Glossitis [Unknown]
  - Dental caries [Unknown]
  - Tooth abscess [Unknown]
  - Ejection fraction decreased [Unknown]
  - Myelitis [Unknown]
  - Gingival injury [Unknown]
  - Laryngitis [Unknown]
